FAERS Safety Report 7331423-9 (Version None)
Quarter: 2011Q1

REPORT INFORMATION
  Report Type: 
  Country: None (occurrence: None)
  Receive Date: 20110304
  Receipt Date: 20110304
  Transmission Date: 20110831
  Serious: Yes (Death)
  Sender: FDA-Public Use
  Company Number: SV-PFIZER INC-2011041573

PATIENT
  Age: 67 Year
  Sex: Female

DRUGS (1)
  1. PANTECTA [Suspect]
     Dosage: UNK
     Route: 065

REACTIONS (1)
  - DEATH [None]
